FAERS Safety Report 6681928-9 (Version None)
Quarter: 2010Q2

REPORT INFORMATION
  Report Type: 
  Country: None (occurrence: None)
  Receive Date: 20100409
  Receipt Date: 20100401
  Transmission Date: 20101027
  Serious: Yes (Other)
  Sender: FDA-Public Use
  Company Number: 2010-0043

PATIENT
  Age: 78 Year
  Sex: Female

DRUGS (1)
  1. FARESTON [Suspect]
     Indication: BREAST CANCER
     Dosage: 2 TABLETS
     Route: 048
     Dates: start: 20090301, end: 20090601

REACTIONS (2)
  - CONDITION AGGRAVATED [None]
  - UTERINE LEIOMYOMA [None]
